FAERS Safety Report 24801256 (Version 1)
Quarter: 2025Q1

REPORT INFORMATION
  Report Type: Spontaneous
  Country: US (occurrence: None)
  Receive Date: 20250102
  Receipt Date: 20250102
  Transmission Date: 20250409
  Serious: Yes (Life-Threatening, Hospitalization)
  Sender: FDA-CTU
  Company Number: None

PATIENT
  Age: 61 Year
  Sex: Male
  Weight: 76.5 kg

DRUGS (3)
  1. QELBREE [Suspect]
     Active Substance: VILOXAZINE HYDROCHLORIDE
     Indication: Attention deficit hyperactivity disorder
  2. BUPROPION [Suspect]
     Active Substance: BUPROPION
  3. VALSARTAN [Concomitant]
     Active Substance: VALSARTAN

REACTIONS (3)
  - Drug interaction [None]
  - Seizure [None]
  - Hyponatraemia [None]

NARRATIVE: CASE EVENT DATE: 20240517
